FAERS Safety Report 7067540-0 (Version None)
Quarter: 2010Q4

REPORT INFORMATION
  Report Type: 
  Country: None (occurrence: None)
  Receive Date: 20101028
  Receipt Date: 20101014
  Transmission Date: 20110411
  Serious: Yes (Life-Threatening)
  Sender: FDA-Public Use
  Company Number: GB-RANBAXY-2010RR-38975

PATIENT
  Age: 34 Year
  Sex: Female

DRUGS (3)
  1. OFLOXACIN [Suspect]
     Indication: PELVIC INFECTION
     Dosage: 400 MG, UNK
     Route: 048
     Dates: start: 20100916, end: 20100917
  2. CHAMPIX [Concomitant]
  3. METRONIDAZOLE [Concomitant]

REACTIONS (4)
  - ANXIETY [None]
  - DEPRESSION [None]
  - FEELING ABNORMAL [None]
  - SUICIDAL IDEATION [None]
